FAERS Safety Report 6633086-4 (Version None)
Quarter: 2010Q1

REPORT INFORMATION
  Report Type: 
  Country: None (occurrence: None)
  Receive Date: 20100312
  Receipt Date: 20100301
  Transmission Date: 20100710
  Serious: Yes (Other)
  Sender: FDA-Public Use
  Company Number: PHHY2009GB57796

PATIENT
  Sex: Female
  Weight: 50 kg

DRUGS (4)
  1. EXJADE [Suspect]
     Indication: APLASTIC ANAEMIA
     Dosage: 20 MG/KG, UNK
  2. EXJADE [Suspect]
     Dosage: 15 MG/KG, UNK
  3. EXJADE [Suspect]
     Dosage: 20 MG/KG, UNK
     Route: 048
     Dates: start: 20091014
  4. CYCLOSPORINE [Suspect]
     Dosage: 20 MG/DAY
     Route: 048
     Dates: start: 20080501

REACTIONS (8)
  - BLOOD CREATININE INCREASED [None]
  - FACE OEDEMA [None]
  - GENERALISED OEDEMA [None]
  - JOINT SWELLING [None]
  - PROTEINURIA [None]
  - RASH [None]
  - RENAL IMPAIRMENT [None]
  - SERUM FERRITIN INCREASED [None]
